FAERS Safety Report 25275202 (Version 1)
Quarter: 2025Q2

REPORT INFORMATION
  Report Type: Spontaneous
  Country: US (occurrence: US)
  Receive Date: 20250506
  Receipt Date: 20250506
  Transmission Date: 20250716
  Serious: Yes (Hospitalization)
  Sender: MYLAN
  Company Number: US-MYLANLABS-2025M1038337

PATIENT
  Age: 5 Decade
  Sex: Female

DRUGS (36)
  1. LEUCOVORIN [Suspect]
     Active Substance: LEUCOVORIN\LEUCOVORIN CALCIUM
     Indication: Pancreatic carcinoma
  2. LEUCOVORIN [Suspect]
     Active Substance: LEUCOVORIN\LEUCOVORIN CALCIUM
     Route: 065
  3. LEUCOVORIN [Suspect]
     Active Substance: LEUCOVORIN\LEUCOVORIN CALCIUM
     Route: 065
  4. LEUCOVORIN [Suspect]
     Active Substance: LEUCOVORIN\LEUCOVORIN CALCIUM
  5. FLUOROURACIL [Suspect]
     Active Substance: FLUOROURACIL
     Indication: Pancreatic carcinoma
  6. FLUOROURACIL [Suspect]
     Active Substance: FLUOROURACIL
     Route: 065
  7. FLUOROURACIL [Suspect]
     Active Substance: FLUOROURACIL
     Route: 065
  8. FLUOROURACIL [Suspect]
     Active Substance: FLUOROURACIL
  9. OXALIPLATIN [Suspect]
     Active Substance: OXALIPLATIN
     Indication: Pancreatic carcinoma
  10. OXALIPLATIN [Suspect]
     Active Substance: OXALIPLATIN
  11. OXALIPLATIN [Suspect]
     Active Substance: OXALIPLATIN
     Route: 065
  12. OXALIPLATIN [Suspect]
     Active Substance: OXALIPLATIN
     Route: 065
  13. OXALIPLATIN [Suspect]
     Active Substance: OXALIPLATIN
  14. OXALIPLATIN [Suspect]
     Active Substance: OXALIPLATIN
  15. OXALIPLATIN [Suspect]
     Active Substance: OXALIPLATIN
     Route: 065
  16. OXALIPLATIN [Suspect]
     Active Substance: OXALIPLATIN
     Route: 065
  17. PANTOPRAZOLE SODIUM [Suspect]
     Active Substance: PANTOPRAZOLE SODIUM
     Indication: Gastritis
  18. PANTOPRAZOLE SODIUM [Suspect]
     Active Substance: PANTOPRAZOLE SODIUM
     Route: 048
  19. PANTOPRAZOLE SODIUM [Suspect]
     Active Substance: PANTOPRAZOLE SODIUM
     Route: 048
  20. PANTOPRAZOLE SODIUM [Suspect]
     Active Substance: PANTOPRAZOLE SODIUM
  21. IRINOTECAN [Suspect]
     Active Substance: IRINOTECAN
     Indication: Pancreatic carcinoma
  22. IRINOTECAN [Suspect]
     Active Substance: IRINOTECAN
  23. IRINOTECAN [Suspect]
     Active Substance: IRINOTECAN
     Route: 065
  24. IRINOTECAN [Suspect]
     Active Substance: IRINOTECAN
     Route: 065
  25. IRINOTECAN [Suspect]
     Active Substance: IRINOTECAN
  26. IRINOTECAN [Suspect]
     Active Substance: IRINOTECAN
  27. IRINOTECAN [Suspect]
     Active Substance: IRINOTECAN
     Route: 065
  28. IRINOTECAN [Suspect]
     Active Substance: IRINOTECAN
     Route: 065
  29. IRINOTECAN [Suspect]
     Active Substance: IRINOTECAN
  30. IRINOTECAN [Suspect]
     Active Substance: IRINOTECAN
     Route: 065
  31. IRINOTECAN [Suspect]
     Active Substance: IRINOTECAN
  32. IRINOTECAN [Suspect]
     Active Substance: IRINOTECAN
     Route: 065
  33. PEGFILGRASTIM [Concomitant]
     Active Substance: PEGFILGRASTIM
     Indication: Febrile neutropenia
  34. PEGFILGRASTIM [Concomitant]
     Active Substance: PEGFILGRASTIM
     Route: 065
  35. PEGFILGRASTIM [Concomitant]
     Active Substance: PEGFILGRASTIM
     Route: 065
  36. PEGFILGRASTIM [Concomitant]
     Active Substance: PEGFILGRASTIM

REACTIONS (3)
  - Hyperbilirubinaemia [Unknown]
  - Thrombocytopenia [Unknown]
  - Drug ineffective [Unknown]
